FAERS Safety Report 16134168 (Version 1)
Quarter: 2019Q1

REPORT INFORMATION
  Report Type: Spontaneous
  Country: GB (occurrence: GB)
  Receive Date: 20190329
  Receipt Date: 20190329
  Transmission Date: 20190418
  Serious: Yes (Other)
  Sender: FDA-Public Use
  Company Number: PHHY2019GB055744

PATIENT
  Age: 73 Year
  Sex: Male
  Weight: 95.5 kg

DRUGS (3)
  1. DOCETAXEL. [Suspect]
     Active Substance: DOCETAXEL
     Indication: CHEMOTHERAPY
     Dosage: 130 MG, UNK
     Route: 065
     Dates: start: 20181122
  2. DOCETAXEL. [Suspect]
     Active Substance: DOCETAXEL
     Dosage: UNK (DRUG WAS RESTARTED AT 1/4 RATE AND THE PATIENT HAD SO FAR TOLERATED 1/4 RATE AND 1/2 RATE AND )
     Route: 065
  3. SODIUM CHLORIDE. [Suspect]
     Active Substance: SODIUM CHLORIDE
     Indication: MEDICATION DILUTION
     Dosage: UNK (DRUG WAS RESTARTED AT 1/4 RATE AND THE PATIENT HAD SO FAR TOLERATED 1/4 RATE AND 1/2 RATE AND )
     Route: 065
     Dates: start: 20181122

REACTIONS (4)
  - Feeling hot [Recovered/Resolved]
  - Dyspnoea [Recovered/Resolved]
  - Flushing [Recovered/Resolved]
  - Loss of consciousness [Recovered/Resolved]

NARRATIVE: CASE EVENT DATE: 20190220
